FAERS Safety Report 24467623 (Version 1)
Quarter: 2024Q4

REPORT INFORMATION
  Report Type: Report from Study
  Country: US (occurrence: US)
  Receive Date: 20241018
  Receipt Date: 20241018
  Transmission Date: 20250114
  Serious: No
  Sender: ROCHE
  Company Number: US-ROCHE-3577030

PATIENT
  Age: 85 Year
  Sex: Female

DRUGS (1)
  1. XOLAIR [Suspect]
     Active Substance: OMALIZUMAB
     Indication: Idiopathic urticaria
     Dosage: LAST INJECTION DATE - 20/MAY/2024
     Route: 065
     Dates: end: 20240511

REACTIONS (1)
  - Autoimmune disorder [Unknown]
